FAERS Safety Report 5958998-6 (Version None)
Quarter: 2008Q4

REPORT INFORMATION
  Report Type: 
  Country: None (occurrence: None)
  Receive Date: 20081120
  Receipt Date: 20081111
  Transmission Date: 20090506
  Serious: Yes (Life-Threatening)
  Sender: FDA-Public Use
  Company Number: IT-RANBAXY-2008RR-19258

PATIENT
  Sex: Female

DRUGS (1)
  1. LORAZEPAM [Suspect]

REACTIONS (3)
  - FEELING HOT [None]
  - HYPOAESTHESIA [None]
  - VESTIBULAR DISORDER [None]
